FAERS Safety Report 7001426-2 (Version None)
Quarter: 2010Q3

REPORT INFORMATION
  Report Type: 
  Country: None (occurrence: None)
  Receive Date: 20100920
  Receipt Date: 20100115
  Transmission Date: 20110219
  Serious: No
  Sender: FDA-Public Use
  Company Number: US-ASTRAZENECA-2010SE01976

PATIENT
  Age: 40 Year
  Sex: Male
  Weight: 113.4 kg

DRUGS (4)
  1. SEROQUEL [Suspect]
     Indication: BIPOLAR DISORDER
     Dosage: 200 MG IN MORNING AND 400 MG AT HOURS OF SLEEP
     Route: 048
     Dates: start: 20070101, end: 20100113
  2. NORVASC [Concomitant]
     Indication: HYPERTENSION
  3. EFFEXOR XR [Concomitant]
     Indication: BIPOLAR I DISORDER
  4. WELLBUTRIN [Concomitant]
     Indication: BIPOLAR DISORDER

REACTIONS (3)
  - COLD SWEAT [None]
  - INSOMNIA [None]
  - TREMOR [None]
